FAERS Safety Report 8567118-3 (Version None)
Quarter: 2012Q3

REPORT INFORMATION
  Report Type: 
  Country: None (occurrence: None)
  Receive Date: 20120803
  Receipt Date: 20110910
  Transmission Date: 20120928
  Serious: No
  Sender: FDA-Public Use
  Company Number: US-ABBOTT-11P-163-0853281-00

PATIENT
  Sex: Male

DRUGS (2)
  1. ASPIRIN [Concomitant]
     Indication: PROPHYLAXIS
     Dosage: 15-30 MINUTES PRIOR TO NIASPAN
     Route: 048
  2. NIASPAN [Suspect]
     Indication: BLOOD CHOLESTEROL ABNORMAL
     Dosage: AT BEDTIME
     Route: 048
     Dates: start: 20110815

REACTIONS (8)
  - MUSCULOSKELETAL STIFFNESS [None]
  - SKIN BURNING SENSATION [None]
  - SWELLING FACE [None]
  - ABDOMINAL PAIN [None]
  - POOR QUALITY SLEEP [None]
  - ERYTHEMA [None]
  - NERVOUSNESS [None]
  - MYALGIA [None]
